FAERS Safety Report 9303985 (Version 2)
Quarter: 2013Q3

REPORT INFORMATION
  Report Type: Spontaneous
  Country: CZ (occurrence: CZ)
  Receive Date: 20130522
  Receipt Date: 20130712
  Transmission Date: 20140515
  Serious: Yes (Hospitalization)
  Sender: FDA-Public Use
  Company Number: PHHY2013CZ050396

PATIENT
  Age: 8 Year
  Sex: Male

DRUGS (1)
  1. CEFTRIAXONE [Suspect]
     Indication: MENINGITIS ASEPTIC
     Dosage: 100 MG/KG/ DAY
     Route: 042

REACTIONS (5)
  - Nephrolithiasis [Recovered/Resolved]
  - Hypercalciuria [Recovered/Resolved]
  - Cholelithiasis [Recovered/Resolved]
  - Haematuria [Recovered/Resolved]
  - Bladder trabeculation [Recovered/Resolved]
